FAERS Safety Report 8116149-6 (Version None)
Quarter: 2012Q1

REPORT INFORMATION
  Report Type: 
  Country: None (occurrence: None)
  Receive Date: 20120201
  Receipt Date: 20120119
  Transmission Date: 20120608
  Serious: Yes (Other)
  Sender: FDA-Public Use
  Company Number: 2011SP042444

PATIENT
  Age: 56 Year
  Sex: Male

DRUGS (6)
  1. TICE BCG [Suspect]
     Indication: BLADDER CANCER STAGE I, WITHOUT CANCER IN SITU
     Dosage: INVES ; INVES
     Route: 043
     Dates: start: 20091118
  2. TICE BCG [Suspect]
     Indication: BLADDER CANCER STAGE I, WITHOUT CANCER IN SITU
     Dosage: INVES ; INVES
     Route: 043
     Dates: start: 20091111
  3. ESCITALOPRAM [Concomitant]
  4. LTHIUM [Concomitant]
  5. QUETIAPINE [Concomitant]
  6. PREGABALIN [Concomitant]

REACTIONS (14)
  - RESPIRATORY FAILURE [None]
  - TUBULOINTERSTITIAL NEPHRITIS [None]
  - MULTI-ORGAN FAILURE [None]
  - HEPATORENAL FAILURE [None]
  - DRUG HYPERSENSITIVITY [None]
  - CYSTITIS [None]
  - HYPOTENSION [None]
  - HYPOXIA [None]
  - PNEUMONITIS [None]
  - MYALGIA [None]
  - HAEMODIALYSIS [None]
  - HYDROURETER [None]
  - HEPATITIS [None]
  - HEPATOSPLENOMEGALY [None]
